FAERS Safety Report 4718346-6 (Version None)
Quarter: 2005Q3

REPORT INFORMATION
  Report Type: 
  Country: None (occurrence: None)
  Receive Date: 20050720
  Receipt Date: 20050711
  Transmission Date: 20060218
  Serious: Yes (Life-Threatening)
  Sender: FDA-Public Use
  Company Number: FR-JNJFOC-20050703002

PATIENT
  Age: 83 Year
  Sex: Female

DRUGS (2)
  1. TRAMADOL HCL [Suspect]
     Indication: CHOLECYSTITIS
     Route: 042
  2. ACETAMINOPHEN [Concomitant]

REACTIONS (1)
  - BRADYPNOEA [None]
